APPROVED DRUG PRODUCT: LYSTEDA
Active Ingredient: TRANEXAMIC ACID
Strength: 650MG
Dosage Form/Route: TABLET;ORAL
Application: N022430 | Product #001 | TE Code: AB
Applicant: AMRING PHARMACEUTICALS INC
Approved: Nov 13, 2009 | RLD: Yes | RS: Yes | Type: RX